FAERS Safety Report 6978774-5 (Version None)
Quarter: 2010Q3

REPORT INFORMATION
  Report Type: 
  Country: None (occurrence: None)
  Receive Date: 20100913
  Receipt Date: 20100901
  Transmission Date: 20110219
  Serious: Yes (Hospitalization)
  Sender: FDA-Public Use
  Company Number: CA-WYE-H17363810

PATIENT
  Age: 10 Year
  Sex: Female
  Weight: 43 kg

DRUGS (9)
  1. PANTO [Suspect]
     Route: 042
  2. DEXAMETHASONE [Concomitant]
     Dosage: UNKNOWN
     Route: 042
  3. DIMENHYDRINATE [Concomitant]
     Dosage: UNKNOWN
     Route: 042
  4. METHOTREXATE [Suspect]
     Dosage: 6400 MG ONCE
     Route: 042
  5. GLEEVEC [Concomitant]
     Dosage: UNKNOWN
     Route: 048
  6. LEUCOVORIN CALCIUM [Concomitant]
     Dosage: UNKNOWN
     Route: 042
  7. ONDANSETRON [Concomitant]
     Dosage: UNKNOWN
     Route: 042
  8. CODEINE [Concomitant]
     Dosage: UNKNOWN
     Route: 048
  9. FLUCONAZOLE [Concomitant]
     Dosage: UNKNOWN
     Route: 048

REACTIONS (1)
  - DRUG CLEARANCE DECREASED [None]
